FAERS Safety Report 7987381-7 (Version None)
Quarter: 2011Q4

REPORT INFORMATION
  Report Type: 
  Country: None (occurrence: None)
  Receive Date: 20111216
  Receipt Date: 20111026
  Transmission Date: 20120403
  Serious: No
  Sender: FDA-Public Use
  Company Number: US-BRISTOL-MYERS SQUIBB COMPANY-16198293

PATIENT
  Age: 77 Year
  Sex: Female

DRUGS (5)
  1. SIMVASTATIN [Concomitant]
  2. SYNTHROID [Concomitant]
  3. ABILIFY [Suspect]
     Indication: DEPRESSION
     Dosage: REDUCED TO CUT THE PILL IN THE HALF
  4. WELLBUTRIN [Concomitant]
  5. PROZAC [Concomitant]

REACTIONS (1)
  - INSOMNIA [None]
